FAERS Safety Report 5445256-1 (Version None)
Quarter: 2007Q3

REPORT INFORMATION
  Report Type: 
  Country: None (occurrence: None)
  Receive Date: 20070906
  Receipt Date: 20070827
  Transmission Date: 20080115
  Serious: Yes (Other)
  Sender: FDA-Public Use
  Company Number: US-PFIZER INC-2007071436

PATIENT
  Sex: Male
  Weight: 127 kg

DRUGS (4)
  1. LIPITOR [Suspect]
     Indication: BLOOD CHOLESTEROL INCREASED
     Dosage: DAILY DOSE:10MG
     Dates: start: 19970101, end: 20070101
  2. FUROSEMIDE [Concomitant]
  3. POTASSIUM CHLORIDE [Concomitant]
  4. VYTORIN [Concomitant]

REACTIONS (4)
  - ABASIA [None]
  - BLOOD CHOLESTEROL INCREASED [None]
  - ELECTROLYTE IMBALANCE [None]
  - MYALGIA [None]
